FAERS Safety Report 9219790 (Version 1)
Quarter: 2013Q2

REPORT INFORMATION
  Report Type: Spontaneous
  Country: US (occurrence: None)
  Receive Date: 20130405
  Receipt Date: 20130405
  Transmission Date: 20140414
  Serious: Yes (Other)
  Sender: FDA-Public Use
  Company Number: US-1197449

PATIENT
  Sex: Male

DRUGS (1)
  1. DUREZOL [Suspect]
     Indication: POSTOPERATIVE CARE
     Route: 047
     Dates: start: 201303

REACTIONS (2)
  - Intraocular pressure increased [None]
  - Corneal oedema [None]
